FAERS Safety Report 18737794 (Version 2)
Quarter: 2021Q1

REPORT INFORMATION
  Report Type: Report from Study
  Country: None (occurrence: CA)
  Receive Date: 20210114
  Receipt Date: 20210128
  Transmission Date: 20210419
  Serious: Yes (Hospitalization, Other)
  Sender: FDA-Public Use
  Company Number: CA-ABBVIE-21K-028-3727656-00

PATIENT
  Sex: Female

DRUGS (1)
  1. HUMIRA [Suspect]
     Active Substance: ADALIMUMAB
     Indication: CROHN^S DISEASE
     Route: 058
     Dates: start: 20200502

REACTIONS (7)
  - Intestinal obstruction [Recovered/Resolved]
  - Gastrointestinal pain [Unknown]
  - Large intestinal stenosis [Not Recovered/Not Resolved]
  - Intestinal congestion [Unknown]
  - Faecal vomiting [Recovered/Resolved]
  - Small intestinal stenosis [Not Recovered/Not Resolved]
  - Device occlusion [Not Recovered/Not Resolved]

NARRATIVE: CASE EVENT DATE: 2020
